FAERS Safety Report 4581211-1 (Version None)
Quarter: 2005Q1

REPORT INFORMATION
  Report Type: 
  Country: None (occurrence: None)
  Receive Date: 20050214
  Receipt Date: 20040901
  Transmission Date: 20050727
  Serious: No
  Sender: FDA-Public Use
  Company Number: US-GLAXOSMITHKLINE-A0524242A

PATIENT
  Age: 55 Year
  Sex: Female

DRUGS (9)
  1. LAMICTAL [Suspect]
     Dosage: 25MG PER DAY
     Route: 048
     Dates: start: 20040721, end: 20040825
  2. EFFEXOR [Concomitant]
  3. XANAX [Concomitant]
  4. NORVASC [Concomitant]
  5. DIOVAN [Concomitant]
  6. CLONIDINE [Concomitant]
  7. SYNTHROID [Concomitant]
  8. BEXTRA [Concomitant]
  9. MULTI-VITAMIN [Concomitant]

REACTIONS (2)
  - PRURITUS [None]
  - RASH [None]
